FAERS Safety Report 8571419-2 (Version None)
Quarter: 2012Q3

REPORT INFORMATION
  Report Type: 
  Country: None (occurrence: None)
  Receive Date: 20120806
  Receipt Date: 20120726
  Transmission Date: 20120928
  Serious: Yes (Hospitalization, Other)
  Sender: FDA-Public Use
  Company Number: CA-JNJFOC-20120307333

PATIENT
  Sex: Female

DRUGS (1)
  1. REMICADE [Suspect]
     Indication: CROHN'S DISEASE
     Route: 042
     Dates: start: 20090601

REACTIONS (6)
  - INTESTINAL OBSTRUCTION [None]
  - DYSPNOEA [None]
  - GASTRIC ULCER [None]
  - CYSTITIS [None]
  - ABDOMINAL PAIN [None]
  - ARTHRALGIA [None]
